FAERS Safety Report 15559784 (Version 1)
Quarter: 2018Q4

REPORT INFORMATION
  Report Type: Spontaneous
  Country: FR (occurrence: FR)
  Receive Date: 20181029
  Receipt Date: 20181029
  Transmission Date: 20190205
  Serious: Yes (Hospitalization)
  Sender: FDA-Public Use
  Company Number: PHHY2018FR136651

PATIENT
  Age: 66 Year
  Sex: Female
  Weight: 50 kg

DRUGS (5)
  1. ALPRAZOLAM. [Suspect]
     Active Substance: ALPRAZOLAM
     Indication: DEPRESSION
     Dosage: 0.5 MG, QD
     Route: 048
  2. BRINTELLIX [Suspect]
     Active Substance: VORTIOXETINE HYDROBROMIDE
     Indication: DEPRESSION
     Dosage: 1 ?G/L, QD
     Route: 048
  3. TETRALYSAL [LYMECYCLINE] [Suspect]
     Active Substance: LYMECYCLINE
     Indication: PRODUCT USED FOR UNKNOWN INDICATION
     Dosage: 1 ?G/L, QD
     Route: 048
  4. ANDROCUR [Suspect]
     Active Substance: CYPROTERONE ACETATE
     Indication: PRODUCT USED FOR UNKNOWN INDICATION
     Dosage: 1 ?G/L, QD
     Route: 048
     Dates: start: 2006, end: 20180927
  5. OROMONE [Suspect]
     Active Substance: ESTRADIOL
     Indication: HORMONE REPLACEMENT THERAPY
     Dosage: 1 ?G/L, QD
     Route: 048
     Dates: end: 201810

REACTIONS (1)
  - Meningioma [Recovering/Resolving]

NARRATIVE: CASE EVENT DATE: 201804
